FAERS Safety Report 7892621-9 (Version None)
Quarter: 2011Q4

REPORT INFORMATION
  Report Type: 
  Country: None (occurrence: None)
  Receive Date: 20111019
  Receipt Date: 20100901
  Transmission Date: 20120403
  Serious: Yes (Hospitalization)
  Sender: FDA-Public Use
  Company Number: 2011030072

PATIENT
  Sex: Female
  Weight: 68.0396 kg

DRUGS (1)
  1. VIVAGLOBIN [Suspect]
     Indication: IMMUNODEFICIENCY COMMON VARIABLE
     Dosage: 4.5 G 1/WEEK SUBCUTANEOUS
     Route: 058
     Dates: start: 20081207, end: 20100506

REACTIONS (3)
  - CHRONIC OBSTRUCTIVE PULMONARY DISEASE [None]
  - VIRAL UPPER RESPIRATORY TRACT INFECTION [None]
  - BRONCHITIS [None]
